FAERS Safety Report 7126089-7 (Version None)
Quarter: 2010Q4

REPORT INFORMATION
  Report Type: 
  Country: None (occurrence: None)
  Receive Date: 20101129
  Receipt Date: 20101122
  Transmission Date: 20110411
  Serious: Yes (Hospitalization)
  Sender: FDA-Public Use
  Company Number: TR-ROXANE LABORATORIES, INC.-2010-RO-01531RO

PATIENT
  Age: 39 Year
  Sex: Male

DRUGS (8)
  1. AZATHIOPRINE [Suspect]
     Indication: COLITIS ULCERATIVE
  2. PREDNISONE [Suspect]
     Indication: COLITIS ULCERATIVE
  3. CORTICOSTEROIDS [Concomitant]
     Route: 061
  4. CORTICOSTEROIDS [Concomitant]
     Route: 061
  5. ANTHRALIN [Concomitant]
     Route: 061
  6. MESALAZINE [Concomitant]
     Indication: COLITIS ULCERATIVE
     Dosage: 1500 MG
  7. MESALAZINE [Concomitant]
     Route: 054
  8. MESALAZINE [Concomitant]
     Dosage: 1000 MG

REACTIONS (3)
  - BLOOD ALKALINE PHOSPHATASE INCREASED [None]
  - GAMMA-GLUTAMYLTRANSFERASE INCREASED [None]
  - LIVER INJURY [None]
